FAERS Safety Report 18232655 (Version 1)
Quarter: 2020Q3

REPORT INFORMATION
  Report Type: Spontaneous
  Country: US (occurrence: US)
  Receive Date: 20200904
  Receipt Date: 20200904
  Transmission Date: 20201103
  Serious: Yes (Hospitalization)
  Sender: FDA-Public Use
  Company Number: None

PATIENT
  Age: 73 Year
  Sex: Female
  Weight: 64.9 kg

DRUGS (2)
  1. IPILIMUMAB, 1MG/KG [Suspect]
     Active Substance: IPILIMUMAB
     Indication: GLIOBLASTOMA MULTIFORME
     Dosage: ?          OTHER FREQUENCY:EVERY 3 WEEKS;OTHER ROUTE:IV?
     Dates: start: 20200720
  2. NIVOLUMAB 3MG/KG [Concomitant]
     Active Substance: NIVOLUMAB
     Dosage: ?          OTHER FREQUENCY:EVERY 3 WEEKS;OTHER ROUTE:IV?
     Dates: start: 20200720

REACTIONS (3)
  - Urinary tract infection [None]
  - Malaise [None]
  - Confusional state [None]

NARRATIVE: CASE EVENT DATE: 20200820
